FAERS Safety Report 19614387 (Version 1)
Quarter: 2021Q3

REPORT INFORMATION
  Report Type: Spontaneous
  Country: HR (occurrence: HR)
  Receive Date: 20210727
  Receipt Date: 20210727
  Transmission Date: 20211014
  Serious: Yes (Hospitalization, Other)
  Sender: FDA-Public Use
  Company Number: HR-B.I. PHARMACEUTICALS,INC./RIDGEFIELD-2021-BI-117520

PATIENT
  Age: 78 Year
  Sex: Female

DRUGS (2)
  1. FURSEMID [FUROSEMIDE] [Concomitant]
     Active Substance: FUROSEMIDE
     Indication: DIURETIC THERAPY
  2. PRADAXA [Suspect]
     Active Substance: DABIGATRAN ETEXILATE MESYLATE
     Indication: ATRIAL FIBRILLATION
     Dates: start: 202105

REACTIONS (5)
  - Peripheral swelling [Unknown]
  - Dysuria [Unknown]
  - Renal failure [Unknown]
  - Thirst [Unknown]
  - Urine output decreased [Unknown]
